FAERS Safety Report 17016007 (Version 4)
Quarter: 2020Q1

REPORT INFORMATION
  Report Type: Report from Study
  Country: None (occurrence: CO)
  Receive Date: 20191111
  Receipt Date: 20200320
  Transmission Date: 20200409
  Serious: Yes (Hospitalization, Other)
  Sender: FDA-Public Use
  Company Number: CO-ABBVIE-19K-036-2997172-00

PATIENT
  Sex: Female

DRUGS (8)
  1. TRAMAL [Suspect]
     Active Substance: TRAMADOL
     Indication: PAIN
     Route: 065
  2. MEDROL [Concomitant]
     Active Substance: METHYLPREDNISOLONE
     Indication: PRODUCT USED FOR UNKNOWN INDICATION
  3. HUMIRA [Suspect]
     Active Substance: ADALIMUMAB
     Indication: PRODUCT USED FOR UNKNOWN INDICATION
     Route: 058
     Dates: start: 20090930
  4. PROLIA [Concomitant]
     Active Substance: DENOSUMAB
     Indication: RHEUMATOID ARTHRITIS
  5. ACETAMINOPHEN. [Concomitant]
     Active Substance: ACETAMINOPHEN
     Indication: PRODUCT USED FOR UNKNOWN INDICATION
  6. HUMIRA [Suspect]
     Active Substance: ADALIMUMAB
     Indication: RHEUMATOID ARTHRITIS
     Route: 058
  7. CALTRATE [Concomitant]
     Active Substance: CALCIUM CARBONATE
     Indication: PRODUCT USED FOR UNKNOWN INDICATION
  8. THIAMINE. [Concomitant]
     Active Substance: THIAMINE
     Indication: PRODUCT USED FOR UNKNOWN INDICATION

REACTIONS (18)
  - Back pain [Unknown]
  - Dizziness [Recovering/Resolving]
  - Contusion [Not Recovered/Not Resolved]
  - Syncope [Recovering/Resolving]
  - Skin disorder [Recovering/Resolving]
  - Hernia [Unknown]
  - Ovarian cyst [Recovering/Resolving]
  - Amnesia [Recovering/Resolving]
  - Post procedural haematoma [Not Recovered/Not Resolved]
  - Procedural pain [Not Recovered/Not Resolved]
  - Bronchitis [Recovering/Resolving]
  - Mass [Unknown]
  - Neck pain [Recovering/Resolving]
  - Inflammation [Unknown]
  - Vomiting [Recovering/Resolving]
  - Pain [Recovering/Resolving]
  - Spinal pain [Unknown]
  - Muscle rupture [Unknown]

NARRATIVE: CASE EVENT DATE: 2019
